FAERS Safety Report 4512188-2 (Version None)
Quarter: 2004Q4

REPORT INFORMATION
  Report Type: 
  Country: None (occurrence: None)
  Receive Date: 20041123
  Receipt Date: 20041105
  Transmission Date: 20050328
  Serious: Yes (Death)
  Sender: FDA-Public Use
  Company Number: A03200403745

PATIENT
  Age: 41 Year
  Sex: Male

DRUGS (3)
  1. PLAVIX [Suspect]
     Indication: CHEST PAIN
     Dosage: 75 MG QD - ORAL
     Route: 048
     Dates: start: 20040901
  2. PLAVIX [Suspect]
     Indication: STENT PLACEMENT
     Dosage: 75 MG QD - ORAL
     Route: 048
     Dates: start: 20040901
  3. ACETYLSALICYLIC ACID [Concomitant]

REACTIONS (2)
  - MEDICAL DEVICE COMPLICATION [None]
  - THROMBOSIS [None]
